FAERS Safety Report 20228575 (Version 1)
Quarter: 2021Q4

REPORT INFORMATION
  Report Type: Spontaneous
  Country: US (occurrence: US)
  Receive Date: 20211225
  Receipt Date: 20211225
  Transmission Date: 20220303
  Serious: Yes (Hospitalization, Other)
  Sender: FDA-Public Use
  Company Number: US-SA-SAC20211223000619

PATIENT
  Age: 79 Year
  Sex: Male
  Weight: 95.23 kg

DRUGS (4)
  1. PLAVIX [Suspect]
     Active Substance: CLOPIDOGREL BISULFATE
     Indication: Transient ischaemic attack
     Dosage: 75 MG
     Dates: start: 20191223, end: 2019
  2. APIXABAN [Suspect]
     Active Substance: APIXABAN
     Indication: Arthropathy
     Dosage: 2.5 MG, BID
     Route: 048
     Dates: start: 201912
  3. APIXABAN [Suspect]
     Active Substance: APIXABAN
     Indication: Atrial fibrillation
     Dosage: 5 MG, BID
     Dates: start: 201912
  4. CORTISONE ACETATE [Concomitant]
     Active Substance: CORTISONE ACETATE
     Dosage: UNK
     Dates: start: 20191223

REACTIONS (3)
  - Transient ischaemic attack [Unknown]
  - Arthralgia [Unknown]
  - Off label use [Unknown]

NARRATIVE: CASE EVENT DATE: 20191225
